FAERS Safety Report 5706144-6 (Version None)
Quarter: 2008Q2

REPORT INFORMATION
  Report Type: 
  Country: None (occurrence: None)
  Receive Date: 20080415
  Receipt Date: 20080404
  Transmission Date: 20081010
  Serious: Yes (Other)
  Sender: FDA-Public Use
  Company Number: FR-TEVA-169810ISR

PATIENT
  Sex: Male

DRUGS (6)
  1. VINCRISTINE [Suspect]
     Route: 042
     Dates: start: 20070413
  2. DOXORUBICIN HCL [Suspect]
     Dates: start: 20070413
  3. RITUXIMAB [Suspect]
     Route: 042
     Dates: start: 20070413
  4. CYCLOPHOSPHAMIDE [Suspect]
     Route: 042
     Dates: start: 20070413
  5. METHYLPREDNISOLONE [Suspect]
     Route: 048
     Dates: start: 20070413
  6. FLUCONAZOLE [Suspect]
     Route: 048
     Dates: start: 20070612

REACTIONS (4)
  - ANAEMIA [None]
  - FEBRILE NEUTROPENIA [None]
  - MENINGITIS CRYPTOCOCCAL [None]
  - THROMBOCYTOPENIA [None]
